FAERS Safety Report 7403146-9 (Version None)
Quarter: 2011Q2

REPORT INFORMATION
  Report Type: 
  Country: None (occurrence: None)
  Receive Date: 20110408
  Receipt Date: 20110404
  Transmission Date: 20111010
  Serious: Yes (Other)
  Sender: FDA-Public Use
  Company Number: US-PFIZER INC-2011074631

PATIENT
  Sex: Female
  Weight: 90.703 kg

DRUGS (3)
  1. LYRICA [Suspect]
     Indication: FIBROMYALGIA
     Dosage: UNK
     Route: 048
  2. PAXIL [Concomitant]
     Indication: ANXIETY
     Dosage: UNK
  3. VICODIN [Concomitant]
     Indication: ARTHRALGIA
     Dosage: UNK

REACTIONS (6)
  - COMA [None]
  - PANCREAS INFECTION [None]
  - INSOMNIA [None]
  - SKIN DISORDER [None]
  - HYPERHIDROSIS [None]
  - MALAISE [None]
